FAERS Safety Report 12270769 (Version 2)
Quarter: 2016Q2

REPORT INFORMATION
  Report Type: Report from Study
  Country: CA (occurrence: CA)
  Receive Date: 20160415
  Receipt Date: 20160504
  Transmission Date: 20160815
  Serious: Yes (Other)
  Sender: FDA-Public Use
  Company Number: CA-ROCHE-1707480

PATIENT
  Age: 60 Year
  Sex: Female

DRUGS (5)
  1. RANITIDINE. [Concomitant]
     Active Substance: RANITIDINE
  2. INNOHEP [Concomitant]
     Active Substance: TINZAPARIN SODIUM
  3. DEXAMETHASONE. [Concomitant]
     Active Substance: DEXAMETHASONE
  4. AVASTIN [Suspect]
     Active Substance: BEVACIZUMAB
     Indication: GLIOBLASTOMA
     Dosage: LAST DOSE PRIOR TO SERIOUS ADVERSE EVENT: 24/MAR/2016
     Route: 042
     Dates: start: 20160128, end: 20160324
  5. PHENYTOIN. [Concomitant]
     Active Substance: PHENYTOIN

REACTIONS (7)
  - Hypersomnia [Not Recovered/Not Resolved]
  - Blood oestrogen increased [Unknown]
  - Migraine [Unknown]
  - Decreased appetite [Not Recovered/Not Resolved]
  - Bedridden [Recovered/Resolved]
  - Asthenia [Not Recovered/Not Resolved]
  - Headache [Unknown]

NARRATIVE: CASE EVENT DATE: 20160128
